FAERS Safety Report 10287076 (Version 1)
Quarter: 2014Q3

REPORT INFORMATION
  Report Type: Spontaneous
  Country: US (occurrence: US)
  Receive Date: 20140709
  Receipt Date: 20140709
  Transmission Date: 20150326
  Serious: Yes (Hospitalization)
  Sender: FDA-Public Use
  Company Number: US-GLAXOSMITHKLINE-A1079958A

PATIENT
  Age: 56 Year
  Sex: Female

DRUGS (8)
  1. CORTISONE [Concomitant]
     Active Substance: CORTISONE\HYDROCORTISONE
  2. BENLYSTA [Suspect]
     Active Substance: BELIMUMAB
     Indication: SYSTEMIC LUPUS ERYTHEMATOSUS
     Dosage: 1150MCG CYCLIC
     Route: 042
     Dates: start: 2012, end: 201406
  3. HYDROMORPHONE [Concomitant]
     Active Substance: HYDROMORPHONE
  4. CYMBALTA [Concomitant]
     Active Substance: DULOXETINE HYDROCHLORIDE
  5. VICODIN [Concomitant]
     Active Substance: ACETAMINOPHEN\HYDROCODONE BITARTRATE
  6. PLAQUENIL [Concomitant]
     Active Substance: HYDROXYCHLOROQUINE SULFATE
  7. CELEBREX [Concomitant]
     Active Substance: CELECOXIB
  8. PREDNISONE. [Concomitant]
     Active Substance: PREDNISONE

REACTIONS (9)
  - Cervical spinal stenosis [Unknown]
  - Spinal operation [Unknown]
  - Osteoarthritis [Unknown]
  - Hypoaesthesia [Unknown]
  - Musculoskeletal disorder [Not Recovered/Not Resolved]
  - Chondroplasty [Unknown]
  - Osteonecrosis [Unknown]
  - Weight increased [Not Recovered/Not Resolved]
  - Immobile [Unknown]

NARRATIVE: CASE EVENT DATE: 20140624
